FAERS Safety Report 24800977 (Version 1)
Quarter: 2025Q1

REPORT INFORMATION
  Report Type: Report from Study
  Country: US (occurrence: US)
  Receive Date: 20250102
  Receipt Date: 20250102
  Transmission Date: 20250408
  Serious: Yes (Other)
  Sender: ALEXION PHARMACEUTICALS
  Company Number: US-AstraZeneca-CH-00774722A

PATIENT
  Age: 63 Year
  Weight: 70.306 kg

DRUGS (4)
  1. OLAPARIB [Suspect]
     Active Substance: OLAPARIB
     Indication: Ovarian cancer
  2. OLAPARIB [Suspect]
     Active Substance: OLAPARIB
     Route: 048
  3. OLAPARIB [Suspect]
     Active Substance: OLAPARIB
  4. OLAPARIB [Suspect]
     Active Substance: OLAPARIB
     Route: 048

REACTIONS (9)
  - Pulmonary congestion [Unknown]
  - Respiratory disorder [Unknown]
  - Cough [Unknown]
  - Fibrin D dimer increased [Unknown]
  - Pain in extremity [Unknown]
  - Back pain [Unknown]
  - Upper respiratory tract infection [Unknown]
  - Blood pressure increased [Unknown]
  - Heart rate increased [Unknown]
